FAERS Safety Report 5961022-2 (Version None)
Quarter: 2008Q4

REPORT INFORMATION
  Report Type: 
  Country: None (occurrence: None)
  Receive Date: 20081121
  Receipt Date: 20080513
  Transmission Date: 20090506
  Serious: No
  Sender: FDA-Public Use
  Company Number: A0727696A

PATIENT
  Age: 66 Year
  Sex: Female

DRUGS (5)
  1. LANOXIN [Suspect]
     Indication: SINUS TACHYCARDIA
     Route: 048
     Dates: start: 20080421, end: 20080424
  2. TOPROL-XL [Concomitant]
  3. DITROPAN [Concomitant]
  4. SPIRONOLACTONE [Concomitant]
  5. CYTOMEL [Concomitant]

REACTIONS (1)
  - NAUSEA [None]
